FAERS Safety Report 7124401-6 (Version None)
Quarter: 2010Q4

REPORT INFORMATION
  Report Type: 
  Country: None (occurrence: None)
  Receive Date: 20101126
  Receipt Date: 20101122
  Transmission Date: 20110411
  Serious: Yes (Hospitalization)
  Sender: FDA-Public Use
  Company Number: US-BRISTOL-MYERS SQUIBB COMPANY-15400070

PATIENT
  Age: 69 Year
  Sex: Male
  Weight: 74 kg

DRUGS (11)
  1. CARBOPLATIN [Suspect]
     Indication: NON-SMALL CELL LUNG CANCER
     Dosage: 6DF AUC LAST DOSE:20OCT10
     Route: 042
     Dates: start: 20101020
  2. PEMETREXED DISODIUM [Suspect]
     Indication: NON-SMALL CELL LUNG CANCER
     Dosage: LAST DOSE:20OCT10 ONGOING
     Route: 042
     Dates: start: 20101020
  3. PROCHLORPERAZINE [Concomitant]
     Indication: NAUSEA
     Dosage: ONGOING
     Dates: start: 20101020
  4. PROCHLORPERAZINE [Concomitant]
     Indication: VOMITING
     Dosage: ONGOING
     Dates: start: 20101020
  5. LORATADINE [Concomitant]
     Indication: HYPERSENSITIVITY
     Dosage: ONGOING
     Dates: start: 20100714
  6. OMEPRAZOLE [Concomitant]
     Indication: GASTROOESOPHAGEAL REFLUX DISEASE
     Dosage: ONGOING
     Dates: start: 20100716
  7. ASPIRIN [Concomitant]
  8. METOPROLOL SUCCINATE [Concomitant]
     Indication: BLOOD PRESSURE
     Route: 048
  9. SIMVASTATIN [Concomitant]
     Indication: BLOOD CHOLESTEROL
     Route: 048
  10. FOLIC ACID [Concomitant]
     Dates: start: 20101118
  11. VITAMIN B-12 [Concomitant]
     Dates: start: 20101118

REACTIONS (2)
  - PLEURAL EFFUSION [None]
  - SUPRAVENTRICULAR TACHYCARDIA [None]
